FAERS Safety Report 20975107 (Version 1)
Quarter: 2022Q2

REPORT INFORMATION
  Report Type: Spontaneous
  Country: US (occurrence: US)
  Receive Date: 20220617
  Receipt Date: 20220617
  Transmission Date: 20220720
  Serious: Yes (Hospitalization, Other)
  Sender: FDA-Public Use
  Company Number: US-ALKEM LABORATORIES LIMITED-US-ALKEM-2022-04577

PATIENT
  Age: 51 Year
  Sex: Female

DRUGS (5)
  1. CIPROFLOXACIN [Interacting]
     Active Substance: CIPROFLOXACIN
     Indication: Diverticulitis
     Dosage: 500 MILLIGRAM, BID
     Route: 065
  2. TIZANIDINE [Interacting]
     Active Substance: TIZANIDINE
     Indication: Back pain
     Dosage: 4 MILLIGRAM, TID, AS NEEDED
     Route: 065
  3. METRONIDAZOLE [Suspect]
     Active Substance: METRONIDAZOLE
     Indication: Diverticulitis
     Dosage: 500 MILLIGRAM, TID
     Route: 065
  4. OXYCODONE [Interacting]
     Active Substance: OXYCODONE
     Indication: Back pain
     Dosage: 5/325 MG 3 TIMES DAILY AS NEEDED
     Route: 065
  5. OXYCONTIN [Interacting]
     Active Substance: OXYCODONE HYDROCHLORIDE
     Indication: Back pain
     Dosage: 10 MILLIGRAM, BID
     Route: 065

REACTIONS (10)
  - Renal impairment [Unknown]
  - Thrombocytopenia [Unknown]
  - Clostridium difficile infection [Unknown]
  - Abdominal pain [Unknown]
  - Vomiting [Unknown]
  - Nausea [Unknown]
  - Headache [Unknown]
  - Orthostatic hypotension [Unknown]
  - Dizziness [Unknown]
  - Drug interaction [Unknown]
